FAERS Safety Report 9306157 (Version 2)
Quarter: 2013Q2

REPORT INFORMATION
  Report Type: Spontaneous
  Country: DE (occurrence: None)
  Receive Date: 20130304
  Receipt Date: 20130424
  Transmission Date: 20140414
  Serious: Yes (Disabling)
  Sender: FDA-Public Use
  Company Number: 2013DE001104

PATIENT
  Age: 74 Year
  Sex: Male
  Weight: 75 kg

DRUGS (10)
  1. PONATINIB [Suspect]
     Indication: CHRONIC MYELOID LEUKAEMIA
     Route: 048
     Dates: start: 20110315, end: 20121108
  2. ATACAND (CANDESARTAN CILEXETIL) [Concomitant]
  3. ASA (ASA) [Concomitant]
  4. CALCIUM SANDOZ (CALCIUM GLUBIONATE) [Concomitant]
  5. OMEGA-3 FATTY ACIDS (OMEGA-3 FATTY ACIDS) [Concomitant]
  6. NIFEDIPIN (NIFEDIPIN) [Concomitant]
  7. DUODART (DUTASTERIDE, TAMSULOSIN HYDROCHLORIDE) [Concomitant]
  8. DECORTIN (PREDNISONE) [Concomitant]
  9. CALCIUM CARBONATE (CALCIUM CARBONATE) [Concomitant]
  10. MAGNESIUM (MAGNESIUM) [Concomitant]

REACTIONS (4)
  - Retinal vein thrombosis [None]
  - Macular degeneration [None]
  - Cataract [None]
  - Scar [None]
